FAERS Safety Report 4573046-0 (Version None)
Quarter: 2005Q1

REPORT INFORMATION
  Report Type: 
  Country: None (occurrence: None)
  Receive Date: 20050204
  Receipt Date: 20050120
  Transmission Date: 20050727
  Serious: Yes (Death)
  Sender: FDA-Public Use
  Company Number: MK200501-0179-1

PATIENT
  Age: 78 Year
  Sex: Female

DRUGS (4)
  1. ANAFRANIL [Suspect]
     Indication: DEPRESSION
     Dosage: 125 MG QD
     Dates: start: 20040906
  2. THERALENE [Suspect]
  3. FLECAINE [Concomitant]
  4. NICARDIPINE HCL [Concomitant]

REACTIONS (9)
  - AGITATION [None]
  - ANXIETY [None]
  - BODY TEMPERATURE INCREASED [None]
  - CONFUSIONAL STATE [None]
  - HYPERHIDROSIS [None]
  - HYPERTHERMIA MALIGNANT [None]
  - HYPOTONIA [None]
  - MYOCLONUS [None]
  - TREMOR [None]
